FAERS Safety Report 7501347-2 (Version None)
Quarter: 2011Q2

REPORT INFORMATION
  Report Type: 
  Country: None (occurrence: None)
  Receive Date: 20110524
  Receipt Date: 20110511
  Transmission Date: 20111010
  Serious: Yes (Hospitalization)
  Sender: FDA-Public Use
  Company Number: CH-GENENTECH-319030

PATIENT
  Sex: Male
  Weight: 73 kg

DRUGS (1)
  1. RANIBIZUMAB [Suspect]
     Indication: DIABETIC RETINAL OEDEMA
     Dosage: 0.5 MG, UNK
     Route: 031
     Dates: start: 20090107

REACTIONS (2)
  - MYOCARDIAL INFARCTION [None]
  - CONCOMITANT DISEASE PROGRESSION [None]
